FAERS Safety Report 10215030 (Version 1)
Quarter: 2014Q2

REPORT INFORMATION
  Report Type: Spontaneous
  Country: US (occurrence: US)
  Receive Date: 20140603
  Receipt Date: 20140603
  Transmission Date: 20141212
  Serious: Yes (Other)
  Sender: FDA-Public Use
  Company Number: US-PFIZER INC-2014148629

PATIENT
  Age: 70 Year
  Sex: Female
  Weight: 84.81 kg

DRUGS (6)
  1. LYRICA [Suspect]
     Indication: NEUROPATHY PERIPHERAL
     Dosage: 150 MG, 1X/DAY
     Route: 048
     Dates: start: 201402
  2. AMLODIPINE [Concomitant]
     Dosage: 5 MG, UNK
  3. ATENOLOL [Concomitant]
     Dosage: 50 MG, UNK
  4. VENLAFAXINE [Concomitant]
     Dosage: 75 MG, UNK
  5. OXYBUTYNIN [Concomitant]
     Dosage: 5 MG, UNK
  6. SIMVASTATIN [Concomitant]
     Indication: BLOOD CHOLESTEROL INCREASED
     Dosage: 40 MG, UNK

REACTIONS (2)
  - Thyroid disorder [Unknown]
  - Weight increased [Unknown]
